FAERS Safety Report 12670679 (Version 1)
Quarter: 2016Q3

REPORT INFORMATION
  Report Type: Report from Study
  Country: US (occurrence: US)
  Receive Date: 20160822
  Receipt Date: 20160822
  Transmission Date: 20161109
  Serious: Yes (Other)
  Sender: FDA-Public Use
  Company Number: US-ABBVIE-16K-163-1702576-00

PATIENT
  Age: 43 Year
  Sex: Female

DRUGS (2)
  1. HUMIRA [Suspect]
     Active Substance: ADALIMUMAB
     Indication: HIDRADENITIS
     Route: 058
     Dates: start: 201606, end: 201606
  2. HUMIRA [Suspect]
     Active Substance: ADALIMUMAB
     Route: 058
     Dates: start: 201606, end: 201606

REACTIONS (5)
  - Coordination abnormal [Not Recovered/Not Resolved]
  - Pruritus generalised [Recovering/Resolving]
  - Gait disturbance [Recovering/Resolving]
  - Strabismus [Not Recovered/Not Resolved]
  - Balance disorder [Recovering/Resolving]

NARRATIVE: CASE EVENT DATE: 201606
